FAERS Safety Report 6235745-4 (Version None)
Quarter: 2009Q2

REPORT INFORMATION
  Report Type: 
  Country: None (occurrence: None)
  Receive Date: 20090619
  Receipt Date: 20080110
  Transmission Date: 20091009
  Serious: Yes (Hospitalization, Other)
  Sender: FDA-Public Use
  Company Number: US-ASTRAZENECA-2006UW10852

PATIENT
  Age: 15311 Day
  Sex: Female
  Weight: 97.5 kg

DRUGS (49)
  1. SEROQUEL [Suspect]
     Indication: MENTAL DISORDER
     Route: 048
     Dates: start: 20010401, end: 20051031
  2. SEROQUEL [Suspect]
     Indication: HALLUCINATION
     Route: 048
     Dates: start: 20010401, end: 20051031
  3. SEROQUEL [Suspect]
     Dosage: 100-900 MG
     Route: 048
     Dates: start: 20010401
  4. SEROQUEL [Suspect]
     Dosage: 100-900 MG
     Route: 048
     Dates: start: 20010401
  5. ZYPREXA [Suspect]
     Dates: start: 19990109
  6. GEODON [Concomitant]
     Dosage: 60-80 MG
     Dates: start: 20050307
  7. HALDOL [Concomitant]
     Dosage: 50 MG/ML, 100 MG/ML
     Dates: start: 20021113
  8. RISPERDAL [Concomitant]
  9. THORAZINE [Concomitant]
     Dosage: 25- 200 MG
     Route: 048
     Dates: start: 19940114
  10. ATIVAN [Concomitant]
     Dosage: 2-8 MG
     Route: 030
     Dates: start: 19940114
  11. ELAVIL [Concomitant]
  12. BENADRYL [Concomitant]
     Dosage: 25-50 MG
     Route: 048
     Dates: start: 19960731
  13. RESTORIL [Concomitant]
     Dates: start: 19940114
  14. SERAX [Concomitant]
  15. PROZAC [Concomitant]
     Dates: start: 19940114
  16. SYMMETREL [Concomitant]
  17. TRILAFON [Concomitant]
  18. ZANTAC [Concomitant]
     Dates: start: 20010717
  19. MOTRIN [Concomitant]
     Indication: PAIN
     Dates: start: 19940114
  20. HYDROCODEINE [Concomitant]
  21. VENTOLIN [Concomitant]
  22. KLONOPIN [Concomitant]
     Dosage: 1-4 MG
     Route: 048
     Dates: start: 19961116
  23. EFFEXOR [Concomitant]
     Dosage: 75-150 MG
     Dates: start: 20010412
  24. DALMANE [Concomitant]
     Dates: start: 20010401
  25. PRILOSEC [Concomitant]
     Dates: start: 20010617
  26. NAPROXEN [Concomitant]
     Dates: start: 20010617
  27. PROTONIX [Concomitant]
     Dates: start: 20010815
  28. GLYBURIDE [Concomitant]
     Dates: start: 20050405
  29. ZOLOFT [Concomitant]
     Dates: start: 20010817
  30. METOCLOPRAMIDE [Concomitant]
     Dates: start: 20050204
  31. PREVACID [Concomitant]
     Dates: start: 20020505
  32. DETROL LA [Concomitant]
     Dates: start: 20020204
  33. LORAZEPAM [Concomitant]
     Dates: start: 20010401
  34. BENZTROPINE MES [Concomitant]
     Dates: start: 20050307
  35. LIPITOR [Concomitant]
     Dates: start: 20010717
  36. DITROPAN XL [Concomitant]
     Dates: start: 20050405
  37. METFORMIN HCL [Concomitant]
     Dates: start: 20050405
  38. OXYCODONE AND ACETAMINOPHEN [Concomitant]
     Dosage: 5/325
     Dates: start: 20020726
  39. PROPOXYPHENE NAPSYLATE AND ACETAMINOPHEN [Concomitant]
     Dosage: 100-650
     Dates: start: 20021126
  40. ALPRAZOLAM [Concomitant]
     Dates: start: 20030816
  41. DICYCLOMINE [Concomitant]
     Dates: start: 20011120
  42. GLUCOVANCE [Concomitant]
     Dosage: 2.5/500
     Route: 048
     Dates: start: 20011105
  43. LAMISIL [Concomitant]
     Dates: start: 20040106
  44. HUMIBID LA [Concomitant]
     Dates: start: 20040627
  45. PANLOR SS [Concomitant]
     Dates: start: 20020724
  46. CARISOPRODOL [Concomitant]
     Dates: start: 20020722
  47. ADVAIR HFA [Concomitant]
     Dosage: 250/50
     Dates: start: 20020529
  48. ACETAMINOPHEN/COD [Concomitant]
  49. ANDERAL [Concomitant]
     Dates: start: 20011109

REACTIONS (6)
  - DIABETES MELLITUS [None]
  - DIABETES MELLITUS INADEQUATE CONTROL [None]
  - DIABETIC NEUROPATHY [None]
  - DIABETIC VASCULAR DISORDER [None]
  - NEUROPATHY PERIPHERAL [None]
  - PANCREATITIS [None]
